FAERS Safety Report 5959946-5 (Version None)
Quarter: 2008Q4

REPORT INFORMATION
  Report Type: 
  Country: None (occurrence: None)
  Receive Date: 20081119
  Receipt Date: 20081119
  Transmission Date: 20090506
  Serious: Yes (Hospitalization)
  Sender: FDA-Public Use
  Company Number: None

PATIENT
  Age: 59 Year
  Sex: Male

DRUGS (4)
  1. VANCOMYCIN [Suspect]
     Indication: BACTERAEMIA
     Dosage: 1500 MG IV Q12 HOURS
     Route: 042
     Dates: start: 20080708, end: 20080711
  2. LANSOPRAZOLE [Concomitant]
  3. HYDROMORPHONE HCL [Concomitant]
  4. RANITIDINE [Concomitant]

REACTIONS (3)
  - BODY TEMPERATURE INCREASED [None]
  - PRURITUS [None]
  - RASH ERYTHEMATOUS [None]
